FAERS Safety Report 7422926-7 (Version None)
Quarter: 2011Q2

REPORT INFORMATION
  Report Type: 
  Country: None (occurrence: None)
  Receive Date: 20110419
  Receipt Date: 20110411
  Transmission Date: 20111010
  Serious: Yes (Death, Other)
  Sender: FDA-Public Use
  Company Number: JP-ASTRAZENECA-2011SE21702

PATIENT
  Sex: Male

DRUGS (2)
  1. MEROPENEM [Suspect]
     Route: 042
     Dates: start: 20090801, end: 20090801
  2. EXCEGRAN [Concomitant]
     Dates: start: 20090801, end: 20090801

REACTIONS (2)
  - TOXIC EPIDERMAL NECROLYSIS [None]
  - SEPSIS [None]
